FAERS Safety Report 13925886 (Version 1)
Quarter: 2017Q3

REPORT INFORMATION
  Report Type: Spontaneous
  Country: JP (occurrence: JP)
  Receive Date: 20170831
  Receipt Date: 20170831
  Transmission Date: 20171127
  Serious: Yes (Hospitalization)
  Sender: FDA-Public Use
  Company Number: JP-FRESENIUS KABI-FK201707271

PATIENT
  Age: 17 Month
  Sex: Female

DRUGS (5)
  1. AZITHROMYCIN (MANUFACTURER UNKNOWN) [Suspect]
     Active Substance: AZITHROMYCIN ANHYDROUS
     Indication: PYREXIA
  2. AMPICILLIN/SULBACTAM [Concomitant]
     Active Substance: AMPICILLIN SODIUM\SULBACTAM SODIUM
     Indication: PNEUMONIA
     Route: 065
  3. AZITHROMYCIN (MANUFACTURER UNKNOWN) [Suspect]
     Active Substance: AZITHROMYCIN ANHYDROUS
     Indication: COUGH
     Route: 065
  4. PRANLUKAST [Suspect]
     Active Substance: PRANLUKAST
     Indication: COUGH
     Route: 065
  5. PRANLUKAST [Suspect]
     Active Substance: PRANLUKAST
     Indication: PYREXIA

REACTIONS (6)
  - Infection reactivation [Recovered/Resolved]
  - Drug hypersensitivity [Recovering/Resolving]
  - Cytomegalovirus infection [Recovered/Resolved]
  - BK virus infection [Recovered/Resolved]
  - Product use issue [Recovering/Resolving]
  - Drug reaction with eosinophilia and systemic symptoms [Recovering/Resolving]
